FAERS Safety Report 7479285-3 (Version None)
Quarter: 2011Q2

REPORT INFORMATION
  Report Type: 
  Country: None (occurrence: None)
  Receive Date: 20110513
  Receipt Date: 20110511
  Transmission Date: 20111010
  Serious: Yes (Other)
  Sender: FDA-Public Use
  Company Number: GB-PFIZER INC-2011101680

PATIENT
  Age: 43 Year
  Sex: Female
  Weight: 55.5 kg

DRUGS (1)
  1. VARENICLINE TARTRATE [Suspect]
     Indication: SMOKING CESSATION THERAPY
     Dosage: 1 MG, 2X/DAY
     Route: 048
     Dates: start: 20110303, end: 20110427

REACTIONS (4)
  - MUSCLE TIGHTNESS [None]
  - SLEEP DISORDER [None]
  - AGITATION [None]
  - AGGRESSION [None]
